FAERS Safety Report 7568083-8 (Version None)
Quarter: 2011Q2

REPORT INFORMATION
  Report Type: 
  Country: None (occurrence: None)
  Receive Date: 20110623
  Receipt Date: 20110621
  Transmission Date: 20111010
  Serious: Yes (Death)
  Sender: FDA-Public Use
  Company Number: TN-SANOFI-AVENTIS-2011SA038695

PATIENT
  Age: 56 Year
  Sex: Female

DRUGS (9)
  1. PLAVIX [Suspect]
     Route: 048
     Dates: start: 20100510, end: 20110610
  2. INSULATARD [Concomitant]
     Route: 058
  3. RAMIPRIL [Concomitant]
     Route: 048
  4. PLAVIX [Suspect]
     Route: 048
     Dates: start: 20100510, end: 20110610
  5. AMARYL [Concomitant]
     Route: 048
  6. FAMODINE [Concomitant]
     Route: 048
  7. ASPIRIN [Concomitant]
     Route: 048
  8. HYPOTEN [Concomitant]
     Route: 048
  9. CORVASAL [Concomitant]
     Route: 048

REACTIONS (1)
  - CARDIAC FAILURE [None]
